FAERS Safety Report 4821928-4 (Version None)
Quarter: 2005Q4

REPORT INFORMATION
  Report Type: 
  Country: None (occurrence: None)
  Receive Date: 20051107
  Receipt Date: 20050927
  Transmission Date: 20060501
  Serious: Yes (Hospitalization)
  Sender: FDA-Public Use
  Company Number: PHHO2005JP15193

PATIENT
  Age: 85 Year
  Sex: Male
  Weight: 52 kg

DRUGS (3)
  1. DIOVAN [Suspect]
     Indication: HYPERTENSION
     Dosage: 80 MG, QD
     Route: 048
     Dates: start: 20030923
  2. NORVASC [Suspect]
     Indication: HYPERTENSION
     Dosage: 5 MG, QD
     Route: 048
     Dates: start: 20030825, end: 20050527
  3. SIGMART [Concomitant]
     Indication: ANGINA PECTORIS

REACTIONS (7)
  - ANGINA UNSTABLE [None]
  - ARTERIAL STENOSIS [None]
  - ARTERIOSPASM CORONARY [None]
  - CHEST DISCOMFORT [None]
  - CORONARY ARTERY STENOSIS [None]
  - DYSPNOEA [None]
  - ELECTROCARDIOGRAM ST SEGMENT DEPRESSION [None]
